FAERS Safety Report 24569169 (Version 1)
Quarter: 2024Q4

REPORT INFORMATION
  Report Type: Spontaneous
  Country: CN (occurrence: CN)
  Receive Date: 20241031
  Receipt Date: 20241031
  Transmission Date: 20250114
  Serious: Yes (Hospitalization, Disabling)
  Sender: PFIZER
  Company Number: CN-PFIZER INC-PV202400139749

PATIENT
  Age: 34 Year
  Sex: Female
  Weight: 55 kg

DRUGS (6)
  1. ZYVOX [Suspect]
     Active Substance: LINEZOLID
     Indication: Pulmonary tuberculosis
     Dosage: 600.000 MG, 1X/DAY
     Route: 048
     Dates: start: 20241014, end: 20241017
  2. PASINIAZID [Suspect]
     Active Substance: PASINIAZID
     Indication: Pulmonary tuberculosis
     Dosage: 0.300000 G, 3X/DAY
     Route: 048
     Dates: start: 20241015, end: 20241017
  3. PYRAZINAMIDE [Suspect]
     Active Substance: PYRAZINAMIDE
     Indication: Prophylaxis
     Dosage: 0.75 G, 2X/DAY (BID)
     Route: 048
  4. ETHAMBUTOL HYDROCHLORIDE [Suspect]
     Active Substance: ETHAMBUTOL HYDROCHLORIDE
     Indication: Prophylaxis
     Dosage: 0.75 G, 1X/DAY (QD)
     Route: 048
  5. ISONIAZID [Suspect]
     Active Substance: ISONIAZID
     Indication: Prophylaxis
     Dosage: 300 MG, 1X/DAY (QD)
     Route: 041
  6. AMINOSALICYLATE SODIUM [Suspect]
     Active Substance: AMINOSALICYLATE SODIUM
     Indication: Prophylaxis
     Dosage: 10 G, 1X/DAY
     Route: 041

REACTIONS (2)
  - Drug-induced liver injury [Recovering/Resolving]
  - Decreased appetite [Unknown]

NARRATIVE: CASE EVENT DATE: 20241017
